FAERS Safety Report 8346913-X (Version None)
Quarter: 2012Q2

REPORT INFORMATION
  Report Type: 
  Country: None (occurrence: None)
  Receive Date: 20120509
  Receipt Date: 20120503
  Transmission Date: 20120825
  Serious: Yes (Other)
  Sender: FDA-Public Use
  Company Number: PHHY2012CA037849

PATIENT
  Age: 3 Year
  Sex: Male

DRUGS (2)
  1. VANCOMYCIN [Concomitant]
     Indication: BRAIN ABSCESS
  2. MEROPENEM [Suspect]
     Indication: BRAIN ABSCESS
     Route: 042

REACTIONS (9)
  - RASH ERYTHEMATOUS [None]
  - PYREXIA [None]
  - JOINT SWELLING [None]
  - SERUM SICKNESS-LIKE REACTION [None]
  - PANCYTOPENIA [None]
  - EOSINOPHILIA [None]
  - COAGULOPATHY [None]
  - RASH MACULO-PAPULAR [None]
  - HAEMATURIA [None]
